FAERS Safety Report 21896514 (Version 2)
Quarter: 2023Q1

REPORT INFORMATION
  Report Type: Spontaneous
  Country: US (occurrence: US)
  Receive Date: 20230123
  Receipt Date: 20230219
  Transmission Date: 20230418
  Serious: Yes (Life-Threatening, Hospitalization, Other)
  Sender: FDA-Public Use
  Company Number: None

PATIENT
  Age: 23 Year
  Sex: Male

DRUGS (3)
  1. LOPERAMIDE [Suspect]
     Active Substance: LOPERAMIDE
     Indication: Product used for unknown indication
     Dosage: 300 MILLIGRAM PER DAY (MAXIMUM RECOMMENDED DOSE IS 16 MG PER DAY)
     Route: 048
  2. LOPERAMIDE [Suspect]
     Active Substance: LOPERAMIDE
     Dosage: UNK, QOD (200 TO 300 MG OF LOPERAMIDE EVERY OTHER DAY)
     Route: 065
  3. LOPERAMIDE [Suspect]
     Active Substance: LOPERAMIDE
     Dosage: UNK
     Route: 065

REACTIONS (12)
  - Ventricular tachycardia [Unknown]
  - Sinus bradycardia [Unknown]
  - Cardiotoxicity [Unknown]
  - Syncope [Unknown]
  - Anxiety [Unknown]
  - Drug abuse [Unknown]
  - Electrocardiogram QT prolonged [Unknown]
  - Electrocardiogram QRS complex prolonged [Unknown]
  - Chills [Unknown]
  - Piloerection [Unknown]
  - Diarrhoea [Unknown]
  - Overdose [Unknown]
